FAERS Safety Report 20665818 (Version 1)
Quarter: 2022Q2

REPORT INFORMATION
  Report Type: Spontaneous
  Country: US (occurrence: US)
  Receive Date: 20220402
  Receipt Date: 20220402
  Transmission Date: 20220721
  Serious: Yes (Hospitalization, Other)
  Sender: FDA-Public Use
  Company Number: US-Accord-257757

PATIENT
  Age: 60 Year
  Sex: Female

DRUGS (2)
  1. CLOZAPINE [Suspect]
     Active Substance: CLOZAPINE
     Indication: Product used for unknown indication
     Dosage: DECREASED TO 25 MG TWICE A DAY OVER 4 DAYS AND THEN
  2. VALPROIC ACID [Concomitant]
     Active Substance: VALPROIC ACID
     Dosage: 500 MG THRICE A DAY

REACTIONS (4)
  - Delirium [Recovering/Resolving]
  - Anticholinergic syndrome [Recovering/Resolving]
  - Encephalopathy [Recovering/Resolving]
  - Cerebral small vessel ischaemic disease [Recovering/Resolving]
